FAERS Safety Report 20066520 (Version 1)
Quarter: 2021Q4

REPORT INFORMATION
  Report Type: Spontaneous
  Country: IT (occurrence: IT)
  Receive Date: 20211115
  Receipt Date: 20211115
  Transmission Date: 20220303
  Serious: Yes (Other)
  Sender: FDA-Public Use
  Company Number: IT-ABBVIE-21K-083-4159088-00

PATIENT
  Age: 16 Year
  Sex: Female

DRUGS (6)
  1. VALPROATE SODIUM [Suspect]
     Active Substance: VALPROATE SODIUM
     Indication: Product used for unknown indication
     Route: 048
     Dates: start: 20190917, end: 20191215
  2. VALPROATE SODIUM [Suspect]
     Active Substance: VALPROATE SODIUM
     Route: 048
  3. VALPROATE SODIUM [Suspect]
     Active Substance: VALPROATE SODIUM
     Route: 048
  4. RISPERIDONE [Suspect]
     Active Substance: RISPERIDONE
     Indication: Product used for unknown indication
     Route: 048
     Dates: start: 20190901, end: 20191215
  5. RISPERIDONE [Suspect]
     Active Substance: RISPERIDONE
     Dosage: 0.5MG IN THE MORNING AND 1MG IN THE EVENING
     Route: 048
  6. TAVOR [Concomitant]
     Indication: Product used for unknown indication
     Route: 048

REACTIONS (4)
  - Agitation [Unknown]
  - Aggression [Unknown]
  - Apathy [Unknown]
  - Drug ineffective [Unknown]

NARRATIVE: CASE EVENT DATE: 20191215
